FAERS Safety Report 7797410-1 (Version None)
Quarter: 2011Q4

REPORT INFORMATION
  Report Type: 
  Country: None (occurrence: None)
  Receive Date: 20111003
  Receipt Date: 20110927
  Transmission Date: 20120403
  Serious: Yes (Other)
  Sender: FDA-Public Use
  Company Number: GER/UKI/11/0021349

PATIENT
  Age: 79 Year
  Sex: Female

DRUGS (3)
  1. LANSOPRAZOLE [Concomitant]
  2. XALACOM (XALACOM) [Concomitant]
  3. TERBINAFINE HCL [Suspect]
     Indication: NAIL INFECTION
     Dosage: 250 MG, 1 IN 1 D, ORAL
     Route: 048
     Dates: start: 20110726, end: 20110904

REACTIONS (4)
  - DYSGEUSIA [None]
  - WEIGHT DECREASED [None]
  - OROPHARYNGEAL PAIN [None]
  - DECREASED APPETITE [None]
